FAERS Safety Report 4953747-2 (Version None)
Quarter: 2006Q1

REPORT INFORMATION
  Report Type: 
  Country: None (occurrence: None)
  Receive Date: 20060327
  Receipt Date: 20060315
  Transmission Date: 20060701
  Serious: Yes (Other)
  Sender: FDA-Public Use
  Company Number: NSADSS2001032404

PATIENT
  Sex: Female
  Weight: 88.91 kg

DRUGS (7)
  1. REMICADE [Suspect]
     Route: 041
     Dates: start: 20000101
  2. REMICADE [Suspect]
     Indication: RHEUMATOID ARTHRITIS
     Route: 041
     Dates: start: 20000101
  3. METHOTREXATE [Concomitant]
  4. DARVOCET [Concomitant]
  5. DARVOCET [Concomitant]
  6. FOLIC ACID [Concomitant]
  7. SYNTHROID [Concomitant]

REACTIONS (1)
  - TUBERCULOSIS [None]
